FAERS Safety Report 5846947-0 (Version None)
Quarter: 2008Q3

REPORT INFORMATION
  Report Type: 
  Country: None (occurrence: None)
  Receive Date: 20080815
  Receipt Date: 20080806
  Transmission Date: 20090109
  Serious: Yes (Hospitalization)
  Sender: FDA-Public Use
  Company Number: CA-ELI_LILLY_AND_COMPANY-CA200806002312

PATIENT
  Sex: Female

DRUGS (10)
  1. CYMBALTA [Suspect]
     Indication: FIBROMYALGIA
     Dosage: 60 MG, UNK
     Route: 048
     Dates: start: 20080414
  2. CYMBALTA [Suspect]
     Dosage: 1 D/F, UNK
     Dates: start: 20080421
  3. CYMBALTA [Suspect]
     Dosage: 1 D/F, UNK
     Dates: start: 20080525, end: 20080501
  4. NORTRIPTYLINE HCL [Concomitant]
     Dosage: 25 MG, EACH EVENING
     Dates: end: 20080101
  5. STRATTERA [Concomitant]
     Dosage: 40 MG, DAILY (1/D)
     Dates: end: 20080101
  6. ADVIL LIQUI-GELS [Concomitant]
     Dosage: 1 D/F, UNK
     Dates: end: 20080101
  7. LYRICA [Concomitant]
     Dosage: 50 MG, 2/D
     Dates: end: 20080101
  8. NEXIUM [Concomitant]
     Dosage: 40 MG, 2/D
     Dates: end: 20080101
  9. VITAMIN B12 NOS W/VITAMIN B6 [Concomitant]
     Dosage: 1 D/F, UNK
     Dates: end: 20080101
  10. CELEXA [Concomitant]
     Dates: end: 20080401

REACTIONS (9)
  - ASTHENIA [None]
  - BALANCE DISORDER [None]
  - CERVICAL ROOT PAIN [None]
  - DYSPNOEA [None]
  - HEADACHE [None]
  - HYPERTHERMIA [None]
  - NAUSEA [None]
  - TREMOR [None]
  - VERTIGO [None]
